FAERS Safety Report 7301985-6 (Version None)
Quarter: 2011Q1

REPORT INFORMATION
  Report Type: 
  Country: None (occurrence: None)
  Receive Date: 20110218
  Receipt Date: 20110204
  Transmission Date: 20110831
  Serious: Yes (Other)
  Sender: FDA-Public Use
  Company Number: US-SANOFI-AVENTIS-2011SA008566

PATIENT
  Sex: Female

DRUGS (7)
  1. PLAVIX [Suspect]
     Indication: CEREBROVASCULAR ACCIDENT PROPHYLAXIS
     Route: 048
  2. PLAVIX [Suspect]
     Route: 048
  3. PLAVIX [Suspect]
     Route: 048
     Dates: start: 20110201
  4. PLAVIX [Suspect]
     Route: 048
     Dates: start: 20110201
  5. SYNTHROID [Concomitant]
  6. VITAMIN B [Concomitant]
  7. ASCORBIC ACID [Concomitant]

REACTIONS (4)
  - EYE DISORDER [None]
  - TRANSIENT ISCHAEMIC ATTACK [None]
  - VISUAL IMPAIRMENT [None]
  - OFF LABEL USE [None]
